FAERS Safety Report 4649732-0 (Version None)
Quarter: 2005Q2

REPORT INFORMATION
  Report Type: 
  Country: None (occurrence: None)
  Receive Date: 20050427
  Receipt Date: 20050413
  Transmission Date: 20051028
  Serious: Yes (Life-Threatening, Hospitalization, Other)
  Sender: FDA-Public Use
  Company Number: GXKR2005JP00908

PATIENT
  Age: 56 Year
  Sex: Male

DRUGS (4)
  1. RIMACTANE (RIFAMPICIN) [Suspect]
     Indication: PULMONARY TUBERCULOSIS
  2. ISONIAZID [Suspect]
     Indication: PULMONARY TUBERCULOSIS
  3. ESANBUTOL (ETHAMBUTOL) [Suspect]
     Indication: PULMONARY TUBERCULOSIS
  4. PYRAZINAMIDE [Suspect]
     Indication: PULMONARY TUBERCULOSIS

REACTIONS (4)
  - DYSPNOEA [None]
  - RASH [None]
  - SEPSIS [None]
  - STEVENS-JOHNSON SYNDROME [None]
